FAERS Safety Report 8574653-0 (Version None)
Quarter: 2012Q3

REPORT INFORMATION
  Report Type: 
  Country: None (occurrence: None)
  Receive Date: 20120807
  Receipt Date: 20120726
  Transmission Date: 20120928
  Serious: Yes (Hospitalization)
  Sender: FDA-Public Use
  Company Number: FR-AMGEN-FRASP2012048101

PATIENT
  Age: 54 Year
  Sex: Female

DRUGS (10)
  1. PREDNISONE [Concomitant]
     Dosage: UNK
  2. METRONIDAZOLE [Suspect]
     Indication: SEPSIS
     Dosage: UNK
     Dates: start: 20120626, end: 20120626
  3. POTASSIUM CHLORIDE [Concomitant]
     Dosage: UNK
  4. ENBREL [Suspect]
     Indication: RHEUMATOID ARTHRITIS
     Dosage: UNK
     Route: 058
     Dates: start: 20110901
  5. ACETAMINOPHEN [Concomitant]
     Dosage: UNK
  6. TRAMADOL HCL [Concomitant]
     Dosage: UNK
  7. CEFTRIAXONE [Suspect]
     Indication: SEPSIS
     Dosage: 1 G, DAILY
     Route: 042
     Dates: start: 20120626, end: 20120702
  8. LODINE [Concomitant]
     Dosage: UNK
  9. LEVOTHYROXINE SODIUM [Concomitant]
     Dosage: UNK
  10. GENTAMICIN [Concomitant]
     Dosage: UNK

REACTIONS (2)
  - AGRANULOCYTOSIS [None]
  - SEPSIS [None]
